FAERS Safety Report 5243507-X (Version None)
Quarter: 2007Q1

REPORT INFORMATION
  Report Type: 
  Country: None (occurrence: None)
  Receive Date: 20070222
  Receipt Date: 20070213
  Transmission Date: 20070707
  Serious: Yes (Life-Threatening, Hospitalization, Disabling, Other)
  Sender: FDA-Public Use
  Company Number: PHEH2006US12393

PATIENT
  Age: 42 Year
  Sex: Male
  Weight: 167.8 kg

DRUGS (3)
  1. DEPAKOTE [Concomitant]
     Dosage: THREE 500 MG TABS IN A.M./TWO H.S.
     Route: 048
  2. DEPAKOTE [Concomitant]
     Dosage: ONE 250 MG TAB AT NOON
     Route: 048
  3. CLOZARIL [Suspect]
     Indication: SCHIZOPHRENIA
     Dosage: 400 MG, QD
     Route: 048
     Dates: start: 20010327

REACTIONS (5)
  - COMA [None]
  - HYPERGLYCAEMIA [None]
  - MOBILITY DECREASED [None]
  - PNEUMONIA [None]
  - SINUSITIS [None]
